FAERS Safety Report 25739023 (Version 1)
Quarter: 2025Q3

REPORT INFORMATION
  Report Type: Report from Study
  Country: US (occurrence: US)
  Receive Date: 20250829
  Receipt Date: 20250829
  Transmission Date: 20251021
  Serious: Yes (Other)
  Sender: ABBVIE
  Company Number: US-ABBVIE-6434430

PATIENT
  Sex: Male

DRUGS (1)
  1. SKYRIZI [Suspect]
     Active Substance: RISANKIZUMAB-RZAA
     Indication: Psoriasis
     Route: 058
     Dates: start: 20230224

REACTIONS (10)
  - Loss of consciousness [Unknown]
  - Fall [Recovering/Resolving]
  - Limb injury [Unknown]
  - Psoriasis [Recovering/Resolving]
  - Dizziness [Unknown]
  - Nausea [Unknown]
  - Cold sweat [Unknown]
  - Craniofacial fracture [Unknown]
  - Craniofacial fracture [Unknown]
  - Nasal septum deviation [Unknown]
